FAERS Safety Report 7802410-9 (Version None)
Quarter: 2011Q4

REPORT INFORMATION
  Report Type: 
  Country: None (occurrence: None)
  Receive Date: 20111005
  Receipt Date: 20110920
  Transmission Date: 20120403
  Serious: Yes (Death)
  Sender: FDA-Public Use
  Company Number: UTC-010353

PATIENT
  Age: 65 Year
  Sex: Male
  Weight: 90.18 kg

DRUGS (5)
  1. TYVASO [Suspect]
     Indication: PULMONARY ARTERIAL HYPERTENSION
     Dosage: 72 MCG (18 MCG, 4 IN 1 D) INHALATION
     Route: 055
     Dates: start: 20110901
  2. REVATIO [Concomitant]
  3. OXYGEN (OXYGEN) [Concomitant]
  4. TRACLEER [Concomitant]
  5. COUMADIN [Concomitant]

REACTIONS (1)
  - HOSPICE CARE [None]
